FAERS Safety Report 17101787 (Version 3)
Quarter: 2019Q4

REPORT INFORMATION
  Report Type: Spontaneous
  Country: US (occurrence: US)
  Receive Date: 20191202
  Receipt Date: 20191226
  Transmission Date: 20200122
  Serious: No
  Sender: FDA-Public Use
  Company Number: US-BAUSCH-BL-2019-061758

PATIENT
  Age: 69 Year
  Sex: Female
  Weight: 74.91 kg

DRUGS (3)
  1. LOTEMAX SM [Suspect]
     Active Substance: LOTEPREDNOL ETABONATE
     Dosage: NEW BOTTLE; FOUR TIMES IN LEFT EYE ON 12/NOV/2019 AND TILL MORNING DOSE OF 13/NOV/2019.
     Route: 047
     Dates: start: 20191112, end: 20191113
  2. LOTEMAX SM [Suspect]
     Active Substance: LOTEPREDNOL ETABONATE
     Dosage: ANOTHER SAMPLE BOTTLE; INCREASED ONE DROP IN LEFT EYE EVERY TWO HOURS
     Route: 047
     Dates: start: 201911, end: 20191204
  3. LOTEMAX SM [Suspect]
     Active Substance: LOTEPREDNOL ETABONATE
     Indication: POSTOPERATIVE CARE
     Dosage: DAY OF CATARACT SURGERY IN RIGHT EYE
     Route: 047
     Dates: start: 20191029, end: 201911

REACTIONS (7)
  - Eye swelling [Unknown]
  - Visual impairment [Not Recovered/Not Resolved]
  - Product container issue [Unknown]
  - Incorrect dose administered [Unknown]
  - Vision blurred [Recovered/Resolved]
  - Product quality issue [Unknown]
  - Liquid product physical issue [Unknown]

NARRATIVE: CASE EVENT DATE: 2019
